FAERS Safety Report 24978789 (Version 2)
Quarter: 2025Q1

REPORT INFORMATION
  Report Type: Report from Study
  Country: US (occurrence: US)
  Receive Date: 20250218
  Receipt Date: 20250313
  Transmission Date: 20250409
  Serious: Yes (Other)
  Sender: ALEXION PHARMACEUTICALS
  Company Number: US-AstraZeneca-CH-00804898A

PATIENT

DRUGS (1)
  1. STRENSIQ [Suspect]
     Active Substance: ASFOTASE ALFA
     Indication: Hypophosphatasia
     Route: 065

REACTIONS (15)
  - Cardiac failure [Unknown]
  - Macular degeneration [Unknown]
  - Neuropathy peripheral [Unknown]
  - Corneal deposits [Unknown]
  - Diabetic retinopathy [Unknown]
  - Pain in extremity [Unknown]
  - Hypoaesthesia [Unknown]
  - Burning sensation [Unknown]
  - Osteoporosis [Unknown]
  - Osteopenia [Unknown]
  - Spondylitis [Unknown]
  - Intermittent claudication [Unknown]
  - Gait disturbance [Unknown]
  - Dysstasia [Unknown]
  - Calcinosis [Unknown]
